FAERS Safety Report 8347676-4 (Version None)
Quarter: 2012Q2

REPORT INFORMATION
  Report Type: 
  Country: None (occurrence: None)
  Receive Date: 20120509
  Receipt Date: 20120502
  Transmission Date: 20120825
  Serious: Yes (Hospitalization)
  Sender: FDA-Public Use
  Company Number: US-MERCK-1201USA03708

PATIENT
  Age: 76 Year
  Sex: Female
  Weight: 63 kg

DRUGS (8)
  1. ALENDRONATE SODIUM [Suspect]
     Indication: OSTEOPOROSIS POSTMENOPAUSAL
     Route: 048
     Dates: start: 20080312, end: 20110314
  2. PREMPRO [Concomitant]
     Indication: HORMONE REPLACEMENT THERAPY
     Route: 065
  3. FOSAMAX [Suspect]
     Indication: OSTEOPENIA
     Route: 048
     Dates: start: 20010314, end: 20080114
  4. FOSAMAX [Suspect]
     Route: 048
     Dates: start: 19990101
  5. FOSAMAX [Suspect]
     Route: 048
     Dates: start: 19990101
  6. VITAMIN D (UNSPECIFIED) [Concomitant]
     Indication: OSTEOPOROSIS POSTMENOPAUSAL
     Route: 048
  7. FOSAMAX [Suspect]
     Indication: OSTEOPOROSIS POSTMENOPAUSAL
     Route: 048
     Dates: start: 20010314, end: 20080114
  8. CALCIUM (UNSPECIFIED) [Concomitant]
     Indication: OSTEOPOROSIS POSTMENOPAUSAL
     Route: 048

REACTIONS (20)
  - TOOTH ABSCESS [None]
  - OSTEOARTHRITIS [None]
  - RADICULOPATHY [None]
  - RIB FRACTURE [None]
  - DIZZINESS [None]
  - MUSCULOSKELETAL DISCOMFORT [None]
  - GROIN PAIN [None]
  - BACK PAIN [None]
  - INTERVERTEBRAL DISC DEGENERATION [None]
  - FEMUR FRACTURE [None]
  - ANXIETY [None]
  - MUSCULOSKELETAL PAIN [None]
  - CYSTOCELE [None]
  - VERTEBRAL FORAMINAL STENOSIS [None]
  - FALL [None]
  - LOW TURNOVER OSTEOPATHY [None]
  - FRACTURED SACRUM [None]
  - CHONDROCALCINOSIS [None]
  - RECTOCELE [None]
  - UTERINE PROLAPSE [None]
